FAERS Safety Report 26151254 (Version 1)
Quarter: 2025Q4

REPORT INFORMATION
  Report Type: Report from Study
  Country: BR (occurrence: BR)
  Receive Date: 20251212
  Receipt Date: 20251212
  Transmission Date: 20260118
  Serious: Yes (Other)
  Sender: NOVO NORDISK
  Company Number: BR-NOVOPROD-1244498

PATIENT
  Age: 55 Year
  Sex: Female
  Weight: 84 kg

DRUGS (6)
  1. ROSUVASTATIN [Concomitant]
     Active Substance: ROSUVASTATIN
     Indication: Blood cholesterol abnormal
     Dosage: 5 MG, QD (1 TABLET PER DAY)
     Dates: start: 2010
  2. OZEMPIC [Suspect]
     Active Substance: SEMAGLUTIDE
     Dosage: 0.5 MG, QW
     Route: 058
  3. OZEMPIC [Suspect]
     Active Substance: SEMAGLUTIDE
     Dosage: ADMINISTERED BY CLICKS(HALF OF 0.25 MG )
     Route: 058
     Dates: end: 2024
  4. OZEMPIC [Suspect]
     Active Substance: SEMAGLUTIDE
     Indication: Glucose tolerance impaired
     Dosage: 0.25 MG, QW
     Route: 058
     Dates: start: 20240618
  5. OZEMPIC [Suspect]
     Active Substance: SEMAGLUTIDE
     Dosage: 0.25 MG, QW
     Route: 058
  6. METFORMIN HYDROCHLORIDE [Concomitant]
     Active Substance: METFORMIN HYDROCHLORIDE
     Indication: Glucose tolerance impaired
     Dosage: 500 MG, BID(2 TABLETS PER DAY)
     Dates: start: 2010

REACTIONS (10)
  - Hepatic steatosis [Not Recovered/Not Resolved]
  - Illness [Recovered/Resolved]
  - Bradykinesia [Recovered/Resolved]
  - Asthenia [Recovered/Resolved]
  - Eructation [Recovered/Resolved]
  - Vomiting [Recovered/Resolved]
  - Diarrhoea [Recovered/Resolved]
  - Abdominal discomfort [Recovered/Resolved]
  - Off label use [Recovered/Resolved]
  - Wrong technique in product usage process [Recovered/Resolved]

NARRATIVE: CASE EVENT DATE: 20240618
